FAERS Safety Report 23538940 (Version 1)
Quarter: 2024Q1

REPORT INFORMATION
  Report Type: Report from Study
  Country: CA (occurrence: CA)
  Receive Date: 20240219
  Receipt Date: 20240219
  Transmission Date: 20240409
  Serious: Yes (Other)
  Sender: FDA-Public Use
  Company Number: CA-AstraZeneca-2024A036901

PATIENT
  Sex: Female
  Weight: 42.5 kg

DRUGS (1)
  1. ENHERTU [Suspect]
     Active Substance: FAM-TRASTUZUMAB DERUXTECAN-NXKI
     Indication: HER2 negative breast cancer
     Dosage: 253 MG, ONCE EVERY 3 WK
     Route: 042
     Dates: start: 20230914

REACTIONS (2)
  - Pneumonitis [Unknown]
  - Lung opacity [Unknown]
